FAERS Safety Report 23544931 (Version 1)
Quarter: 2024Q1

REPORT INFORMATION
  Report Type: Spontaneous
  Country: FI (occurrence: FI)
  Receive Date: 20240220
  Receipt Date: 20240220
  Transmission Date: 20240410
  Serious: Yes (Other)
  Sender: FDA-Public Use
  Company Number: None

PATIENT
  Age: 44 Year
  Sex: Female

DRUGS (9)
  1. KERENDIA [Suspect]
     Active Substance: FINERENONE
     Indication: Renal failure
     Dosage: 1 X 1
     Route: 048
     Dates: start: 2023
  2. TRESIBA [Suspect]
     Active Substance: INSULIN DEGLUDEC
     Indication: Diabetes mellitus
     Dosage: UNK
     Route: 058
     Dates: start: 2023
  3. METFORMIN HYDROCHLORIDE [Concomitant]
     Active Substance: METFORMIN HYDROCHLORIDE
     Indication: Diabetes mellitus
     Dosage: 1X1
     Route: 048
     Dates: start: 2010
  4. ACETAMINOPHEN\CODEINE PHOSPHATE [Concomitant]
     Active Substance: ACETAMINOPHEN\CODEINE PHOSPHATE
     Indication: Pain
     Dosage: 1X3
     Route: 048
     Dates: start: 2012
  5. EZETIMIBE [Concomitant]
     Active Substance: EZETIMIBE
     Indication: Hypertension
     Dosage: 1X1
     Route: 048
     Dates: start: 2021
  6. INVOKANA [Concomitant]
     Active Substance: CANAGLIFLOZIN
     Indication: Renal failure
     Dosage: 1X1
     Route: 048
     Dates: start: 2022
  7. BISOPROLOL FUMARATE [Concomitant]
     Active Substance: BISOPROLOL FUMARATE
     Indication: Hypertension
     Dosage: 1X1
     Route: 048
     Dates: start: 2010
  8. OZEMPIC [Concomitant]
     Active Substance: SEMAGLUTIDE
     Indication: Diabetes mellitus
     Dosage: 1 MG 1X VKO
     Route: 058
     Dates: start: 2022
  9. ROSUVASTATIN CALCIUM [Concomitant]
     Active Substance: ROSUVASTATIN CALCIUM
     Indication: Blood cholesterol increased
     Dosage: 1X1
     Route: 048
     Dates: start: 2022

REACTIONS (5)
  - Arrhythmia [Unknown]
  - Dyspepsia [Unknown]
  - Palpitations [Unknown]
  - Temperature intolerance [Unknown]
  - Heart rate irregular [Unknown]

NARRATIVE: CASE EVENT DATE: 20230101
